FAERS Safety Report 8299634 (Version 4)
Quarter: 2013Q4

REPORT INFORMATION
  Report Type: Spontaneous
  Country: US (occurrence: US)
  Receive Date: 20111219
  Receipt Date: 20131112
  Transmission Date: 20140711
  Serious: Yes (Disabling, Other)
  Sender: FDA-Public Use
  Company Number: US-JNJFOC-20111205192

PATIENT
  Age: 47 Year
  Sex: Female

DRUGS (12)
  1. PREDNISONE [Suspect]
     Indication: SWELLING
     Dosage: 7 DAYS
     Route: 048
     Dates: start: 201110
  2. PREDNISONE [Suspect]
     Indication: ARTHRALGIA
     Dosage: 7 DAYS
     Route: 048
  3. PREDNISONE [Suspect]
     Indication: ARTHRALGIA
     Dosage: 7 DAYS
     Route: 048
     Dates: start: 201110
  4. PREDNISONE [Suspect]
     Indication: ARTHRALGIA
     Dosage: 7 DAYS
     Route: 048
  5. HUMIRA [Suspect]
     Indication: PSORIASIS
     Dosage: LOADING DOSE
     Route: 058
     Dates: start: 20111003
  6. PHENTERMINE [Suspect]
     Indication: WEIGHT DECREASED
     Dosage: 20-JUL (YEAR UNSPECIFIED)
     Route: 048
     Dates: start: 201107
  7. AMBIEN [Concomitant]
     Indication: SLEEP DISORDER
     Dosage: 1 EVERY NIGHT AT BED TIME OR AS NEEDED
     Route: 065
  8. HYDROXYZINE [Concomitant]
     Indication: PRURITUS
     Dosage: 25-50 MG EVERY 6 (HOURS) OR AS NEEDED
     Route: 065
  9. TRAMADOL [Concomitant]
     Indication: PAIN
     Dosage: EVERY 6 (HOURS) OR AS NEEDED
     Route: 065
  10. STELARA [Suspect]
     Indication: PSORIASIS
     Route: 058
     Dates: start: 20111104, end: 2012
  11. PREDNISONE [Suspect]
     Indication: SWELLING
     Dosage: 7 DAYS
     Route: 048
  12. PREDNISONE [Suspect]
     Indication: SWELLING
     Dosage: 7 DAYS
     Route: 048

REACTIONS (2)
  - Hepatitis B [Recovered/Resolved]
  - Arthralgia [Not Recovered/Not Resolved]
